FAERS Safety Report 7610098-5 (Version None)
Quarter: 2011Q3

REPORT INFORMATION
  Report Type: 
  Country: None (occurrence: None)
  Receive Date: 20110715
  Receipt Date: 20110707
  Transmission Date: 20111222
  Serious: Yes (Other)
  Sender: FDA-Public Use
  Company Number: US-BIOGENIDEC-2011BI023233

PATIENT
  Age: 44 Year
  Sex: Female

DRUGS (3)
  1. AVONEX [Suspect]
     Indication: MULTIPLE SCLEROSIS
     Route: 030
     Dates: start: 20001024
  2. HYDROCHLOROTHIAZIDE [Concomitant]
     Indication: HYPERTENSION
  3. AVONEX [Suspect]
     Route: 030

REACTIONS (8)
  - BLOOD POTASSIUM DECREASED [None]
  - ACUTE SINUSITIS [None]
  - PALPITATIONS [None]
  - HEADACHE [None]
  - HYPERTENSION [None]
  - ILL-DEFINED DISORDER [None]
  - VISUAL IMPAIRMENT [None]
  - MENOPAUSAL SYMPTOMS [None]
